FAERS Safety Report 22600776 (Version 1)
Quarter: 2023Q2

REPORT INFORMATION
  Report Type: Spontaneous
  Country: IT (occurrence: IT)
  Receive Date: 20230614
  Receipt Date: 20230614
  Transmission Date: 20230721
  Serious: Yes (Other)
  Sender: FDA-Public Use
  Company Number: IT-SUN PHARMACEUTICAL INDUSTRIES LTD-2023R1-394277

PATIENT
  Age: 24 Month
  Sex: Female

DRUGS (3)
  1. ALBUTEROL [Suspect]
     Active Substance: ALBUTEROL
     Indication: Asthma
     Dosage: UNK (1.25 MG,EVERY 20 MIN FOR A TOTAL OF 3 DOSES, AND THEN UP TO EVERY 4 H)
  2. ALBUTEROL [Suspect]
     Active Substance: ALBUTEROL
     Dosage: UNK (1.75 MG/DOSE EVERY 20 MIN FOR THREE TIMES,THEN 1.25 MG EVERY 30 MIN THREE TIMES)
  3. FLUTICASONE [Concomitant]
     Active Substance: FLUTICASONE
     Indication: Asthma
     Dosage: 100 MICROGRAM, BID
     Route: 065

REACTIONS (1)
  - Supraventricular tachycardia [Recovered/Resolved]
